FAERS Safety Report 14844795 (Version 3)
Quarter: 2018Q3

REPORT INFORMATION
  Report Type: Spontaneous
  Country: US (occurrence: US)
  Receive Date: 20180504
  Receipt Date: 20180730
  Transmission Date: 20181010
  Serious: Yes (Other)
  Sender: FDA-Public Use
  Company Number: US-ELI_LILLY_AND_COMPANY-US201804011363

PATIENT
  Age: 70 Year
  Sex: Female

DRUGS (2)
  1. FORTEO [Suspect]
     Active Substance: TERIPARATIDE
     Dosage: UNK UNK, UNKNOWN
     Route: 058
     Dates: start: 20180415, end: 20180716
  2. FORTEO [Suspect]
     Active Substance: TERIPARATIDE
     Indication: OSTEOPOROSIS
     Dosage: UNK UNK, UNKNOWN
     Route: 058
     Dates: start: 20180415

REACTIONS (29)
  - Gait disturbance [Unknown]
  - Feeling abnormal [Unknown]
  - Pain in jaw [Recovering/Resolving]
  - Hypersensitivity [Unknown]
  - Pain in extremity [Recovering/Resolving]
  - Cough [Recovering/Resolving]
  - Headache [Recovering/Resolving]
  - Injection site bruising [Unknown]
  - Asthenia [Recovering/Resolving]
  - Bone pain [Unknown]
  - Dizziness [Unknown]
  - Injection site injury [Unknown]
  - Vertigo [Recovering/Resolving]
  - Sleep disorder due to general medical condition, insomnia type [Unknown]
  - Ear pain [Recovering/Resolving]
  - Urine abnormality [Recovering/Resolving]
  - Injection site pain [Unknown]
  - Aphasia [Recovering/Resolving]
  - Arthralgia [Recovering/Resolving]
  - Pain [Unknown]
  - Constipation [Recovering/Resolving]
  - Depression [Recovering/Resolving]
  - Accidental underdose [Recovered/Resolved]
  - Injection site erythema [Unknown]
  - Nausea [Recovering/Resolving]
  - Mobility decreased [Recovering/Resolving]
  - Fatigue [Recovering/Resolving]
  - Confusional state [Recovering/Resolving]
  - Neck pain [Unknown]

NARRATIVE: CASE EVENT DATE: 20180415
